FAERS Safety Report 9926276 (Version 1)
Quarter: 2014Q1

REPORT INFORMATION
  Report Type: Spontaneous
  Country: US (occurrence: US)
  Receive Date: 20140226
  Receipt Date: 20140226
  Transmission Date: 20141002
  Serious: No
  Sender: FDA-Public Use
  Company Number: US-AMGEN-USASP2013081729

PATIENT
  Age: 57 Year
  Sex: Female
  Weight: 56.69 kg

DRUGS (7)
  1. ENBREL [Suspect]
     Indication: PRODUCT USED FOR UNKNOWN INDICATION
     Dosage: 50 MG/ML, QWK
     Route: 058
  2. LAMICTAL [Concomitant]
     Dosage: 150 MG, UNK
  3. SYNTHROID [Concomitant]
     Dosage: 300 MUG, UNK
  4. MULTIVITAMINS, PLAIN [Concomitant]
     Dosage: UNK
  5. FISH OIL [Concomitant]
     Dosage: UNK
  6. CALCIUM [Concomitant]
     Dosage: UNK, CALCIUM 500
  7. B COMPLEX                          /00212701/ [Concomitant]
     Dosage: UNK

REACTIONS (2)
  - Impaired healing [Unknown]
  - Laceration [Unknown]
